FAERS Safety Report 7248799-3 (Version None)
Quarter: 2011Q1

REPORT INFORMATION
  Report Type: 
  Country: None (occurrence: None)
  Receive Date: 20110128
  Receipt Date: 20110124
  Transmission Date: 20110831
  Serious: Yes (Death)
  Sender: FDA-Public Use
  Company Number: US-CEPHALON-2011000094

PATIENT
  Sex: Male

DRUGS (2)
  1. TREANDA [Suspect]
     Route: 042
     Dates: end: 20100713
  2. TREANDA [Suspect]
     Indication: MULTIPLE MYELOMA
     Route: 042
     Dates: start: 20100608

REACTIONS (1)
  - MULTIPLE MYELOMA [None]
